FAERS Safety Report 24120659 (Version 1)
Quarter: 2024Q3

REPORT INFORMATION
  Report Type: Spontaneous
  Country: US (occurrence: US)
  Receive Date: 20240722
  Receipt Date: 20240722
  Transmission Date: 20241017
  Serious: Yes (Hospitalization)
  Sender: SK LIFE SCIENCE
  Company Number: US-SK LIFE SCIENCE, INC-SKPVG-2024-001572

PATIENT

DRUGS (13)
  1. XCOPRI [Suspect]
     Active Substance: CENOBAMATE
     Indication: Partial seizures
     Dosage: UNK
     Route: 048
     Dates: start: 20240527
  2. XCOPRI [Suspect]
     Active Substance: CENOBAMATE
     Dosage: TITRATION PACK
     Route: 048
  3. XCOPRI [Suspect]
     Active Substance: CENOBAMATE
     Dosage: TITRATION PACK
     Route: 048
  4. XCOPRI [Suspect]
     Active Substance: CENOBAMATE
     Dosage: 50 MILLIGRAM
     Route: 048
  5. XCOPRI [Suspect]
     Active Substance: CENOBAMATE
     Dosage: 150 MILLIGRAM, FIRST WEEK
     Route: 048
     Dates: start: 202406
  6. XCOPRI [Suspect]
     Active Substance: CENOBAMATE
     Dosage: 200 MILLIGRAM
     Route: 048
     Dates: start: 20240701
  7. XCOPRI [Suspect]
     Active Substance: CENOBAMATE
     Dosage: 250 MILLIGRAM
     Route: 048
  8. XCOPRI [Suspect]
     Active Substance: CENOBAMATE
     Dosage: 200 MILLIGRAM, ONCE A DAY, IN THE MORNING
     Route: 048
     Dates: end: 20240709
  9. ABILIFY [Suspect]
     Active Substance: ARIPIPRAZOLE
     Indication: Product used for unknown indication
     Dosage: UNK
     Route: 065
     Dates: end: 20240706
  10. APTIOM [Concomitant]
     Active Substance: ESLICARBAZEPINE ACETATE
     Indication: Product used for unknown indication
     Dosage: 600 MILLIGRAM, TWICE A DAY
     Route: 065
  11. VALTOCO [Concomitant]
     Active Substance: DIAZEPAM
     Indication: Seizure
     Dosage: 20 MILLIGRAM
     Route: 065
  12. ALPRAZOLAM [Concomitant]
     Active Substance: ALPRAZOLAM
     Indication: Product used for unknown indication
     Dosage: 0.25 MILLIGRAM, PATIENT HAD ONE DOSE OF THIS
     Route: 065
  13. CLOBAZAM [Concomitant]
     Active Substance: CLOBAZAM
     Indication: Seizure cluster
     Dosage: 1 MILLIGRAM
     Route: 065

REACTIONS (22)
  - Seizure [Recovered/Resolved]
  - Agitation [Recovered/Resolved]
  - Mental status changes [Recovered/Resolved]
  - Tic [Unknown]
  - Dyskinesia [Unknown]
  - Overdose [Unknown]
  - Respiration abnormal [Unknown]
  - Feeling cold [Unknown]
  - Speech disorder [Unknown]
  - Somnolence [Unknown]
  - Seizure [Recovered/Resolved]
  - Drug titration error [Recovered/Resolved]
  - Loss of personal independence in daily activities [Unknown]
  - Crying [Unknown]
  - Agitation [Unknown]
  - Mental disorder [Recovering/Resolving]
  - Fatigue [Unknown]
  - Tremor [Unknown]
  - Dyspnoea [Unknown]
  - Visual impairment [Unknown]
  - Cognitive disorder [Unknown]
  - Somnolence [Unknown]

NARRATIVE: CASE EVENT DATE: 20240501
